FAERS Safety Report 5225290-7 (Version None)
Quarter: 2007Q1

REPORT INFORMATION
  Report Type: 
  Country: None (occurrence: None)
  Receive Date: 20070131
  Receipt Date: 20061102
  Transmission Date: 20070707
  Serious: No
  Sender: FDA-Public Use
  Company Number: US-AMGEN-US198971

PATIENT
  Sex: Female
  Weight: 84 kg

DRUGS (2)
  1. VECTIBIX [Suspect]
     Indication: COLORECTAL CANCER
     Route: 042
     Dates: start: 20061020, end: 20061103
  2. VECTIBIX [Suspect]
     Route: 042
     Dates: start: 20061103, end: 20061103

REACTIONS (3)
  - HOT FLUSH [None]
  - RASH [None]
  - SKIN BURNING SENSATION [None]
